FAERS Safety Report 7812549-X (Version None)
Quarter: 2011Q4

REPORT INFORMATION
  Report Type: 
  Country: None (occurrence: None)
  Receive Date: 20111013
  Receipt Date: 20110623
  Transmission Date: 20120403
  Serious: No
  Sender: FDA-Public Use
  Company Number: US-NOVEN-11US002679

PATIENT
  Age: 63 Year
  Sex: Male

DRUGS (8)
  1. LASIX [Concomitant]
     Indication: CARDIAC FAILURE CONGESTIVE
     Route: 048
  2. FENTANYL [Suspect]
     Indication: PAIN
     Dosage: 50 UG/HR X 72H
     Route: 062
     Dates: start: 20090101
  3. LISINOPRIL [Concomitant]
     Indication: HYPERTENSION
     Route: 048
  4. ZANTAC [Concomitant]
     Indication: GASTROOESOPHAGEAL REFLUX DISEASE
     Route: 048
  5. LOPRESSOR [Concomitant]
     Indication: CARDIAC DISORDER
     Route: 048
  6. HYDROCODONE BITARTRATE [Concomitant]
     Indication: PAIN
     Route: 048
  7. IMDUR [Concomitant]
     Indication: CARDIAC DISORDER
     Route: 048
  8. SYNTHROID [Concomitant]
     Indication: HYPOTHYROIDISM
     Route: 048

REACTIONS (3)
  - SOMNOLENCE [None]
  - INADEQUATE ANALGESIA [None]
  - PRODUCT QUALITY ISSUE [None]
